FAERS Safety Report 8484423 (Version 6)
Quarter: 2012Q4

REPORT INFORMATION
  Report Type: Report from Study
  Country: DE (occurrence: DE)
  Receive Date: 20120330
  Receipt Date: 20121005
  Transmission Date: 20130627
  Serious: Yes (Hospitalization)
  Sender: FDA-Public Use
  Company Number: DE-UCBSA-054025

PATIENT
  Sex: Male
  Weight: 76 kg

DRUGS (10)
  1. CIMZIA [Suspect]
     Indication: RHEUMATOID ARTHRITIS
     Dosage: NO. OF DOSES RECEIVED: 6X
     Route: 058
     Dates: start: 201112, end: 201202
  2. RITUXIMAB [Suspect]
     Dosage: DOSE: 1000 mg
     Dates: start: 20110505
  3. MTX [Suspect]
     Indication: RHEUMATOID ARTHRITIS
     Dosage: 20MG/W
     Route: 048
     Dates: start: 200807, end: 201107
  4. MTX [Suspect]
     Indication: RHEUMATOID ARTHRITIS
     Dates: start: 201108
  5. PREDNISOLONE [Concomitant]
     Indication: RHEUMATOID ARTHRITIS
     Route: 048
     Dates: start: 20070911
  6. CALCIUM [Concomitant]
     Indication: OSTEOPOROSIS
     Dosage: DALIY DOSE 1000 MG
     Route: 048
     Dates: start: 20080715
  7. RAMIPRIL [Concomitant]
     Indication: HYPERTENSION
     Route: 048
     Dates: start: 20070911
  8. PANTOZOL [Concomitant]
     Indication: GASTRITIS PROPHYLAXIS
     Route: 048
     Dates: start: 20101221
  9. ACETYL SALICYL ACID [Concomitant]
     Route: 048
     Dates: start: 201202
  10. VIT D3 [Concomitant]
     Indication: OSTEOPOROSIS PROPHYLAXIS
     Dates: start: 20080715

REACTIONS (3)
  - Large intestine perforation [Not Recovered/Not Resolved]
  - Peritonitis [Not Recovered/Not Resolved]
  - Lower gastrointestinal haemorrhage [Not Recovered/Not Resolved]
